FAERS Safety Report 5674359-1 (Version None)
Quarter: 2008Q2

REPORT INFORMATION
  Report Type: 
  Country: None (occurrence: None)
  Receive Date: 20080303
  Receipt Date: 20071105
  Transmission Date: 20081010
  Serious: Yes (Hospitalization)
  Sender: FDA-Public Use
  Company Number: 2007S1011126

PATIENT
  Age: 13 Year
  Sex: Female
  Weight: 58.9676 kg

DRUGS (2)
  1. AMNESTEEM [Suspect]
     Indication: ACNE
     Dosage: 20 MG;DAILY;ORAL
     Route: 048
     Dates: start: 20070925, end: 20071024
  2. AMNESTEEM [Suspect]
     Indication: ACNE
     Dosage: 40 MG;DAILY;ORAL
     Route: 042
     Dates: start: 20071024, end: 20071103

REACTIONS (1)
  - DEEP VEIN THROMBOSIS [None]
